FAERS Safety Report 7768166-3 (Version None)
Quarter: 2011Q3

REPORT INFORMATION
  Report Type: 
  Country: None (occurrence: None)
  Receive Date: 20110922
  Receipt Date: 20110919
  Transmission Date: 20111222
  Serious: Yes (Hospitalization)
  Sender: FDA-Public Use
  Company Number: CN-GENENTECH-324493

PATIENT
  Age: 59 Year
  Sex: Male
  Weight: 65 kg

DRUGS (5)
  1. PIRARUBICIN [Concomitant]
     Indication: PRECURSOR B-LYMPHOBLASTIC LYMPHOMA
     Dosage: UNK
     Dates: start: 20110816
  2. DEXAMETHASONE [Concomitant]
     Indication: PRECURSOR B-LYMPHOBLASTIC LYMPHOMA
     Dosage: UNK
     Dates: start: 20110816
  3. RITUXIMAB [Suspect]
     Indication: PRECURSOR B-LYMPHOBLASTIC LYMPHOMA
     Dosage: UNK
     Route: 041
     Dates: start: 20110816
  4. CYCLOPHOSPHAMIDE [Concomitant]
     Indication: PRECURSOR B-LYMPHOBLASTIC LYMPHOMA
     Dosage: UNK
     Route: 041
     Dates: start: 20110816
  5. VINDESINE [Concomitant]
     Indication: PRECURSOR B-LYMPHOBLASTIC LYMPHOMA
     Dosage: UNK
     Dates: start: 20110816

REACTIONS (2)
  - PHLEBITIS [None]
  - LUNG INFECTION [None]
